FAERS Safety Report 4821279-8 (Version None)
Quarter: 2005Q4

REPORT INFORMATION
  Report Type: 
  Country: None (occurrence: None)
  Receive Date: 20051104
  Receipt Date: 20051104
  Transmission Date: 20060501
  Serious: Yes (Hospitalization)
  Sender: FDA-Public Use
  Company Number: None

PATIENT
  Sex: Female
  Weight: 51.5 kg

DRUGS (8)
  1. IMATINIB MESYLATE 100 MG CAPSULES, NOVARTIS [Suspect]
     Indication: GLIOBLASTOMA MULTIFORME
     Dosage: 600 MG PO QD
     Route: 048
     Dates: start: 20050920, end: 20050927
  2. TEMOZOLOMIDE SCHERING-PLOUGH [Suspect]
     Indication: GLIOBLASTOMA MULTIFORME
     Dosage: 315 MG PO QD
     Route: 048
     Dates: start: 20050923, end: 20050927
  3. TRILEPTAL [Concomitant]
  4. CELEXA [Concomitant]
  5. FLONASE [Concomitant]
  6. AMBIEN [Concomitant]
  7. KEPPRA [Concomitant]
  8. PRILOSEC [Concomitant]

REACTIONS (12)
  - BRAIN OEDEMA [None]
  - CSF CULTURE POSITIVE [None]
  - CYST DRAINAGE [None]
  - DISEASE PROGRESSION [None]
  - GLIOBLASTOMA MULTIFORME [None]
  - GLIOSIS [None]
  - MACROPHAGES INCREASED [None]
  - MENINGITIS [None]
  - NECROSIS [None]
  - NEOPLASM RECURRENCE [None]
  - STAPHYLOCOCCAL INFECTION [None]
  - THROMBOCYTOPENIA [None]
